FAERS Safety Report 7944066-0 (Version None)
Quarter: 2011Q4

REPORT INFORMATION
  Report Type: 
  Country: None (occurrence: None)
  Receive Date: 20111128
  Receipt Date: 20111121
  Transmission Date: 20120403
  Serious: Yes (Life-Threatening)
  Sender: FDA-Public Use
  Company Number: AT-ASTRAZENECA-2011SE70524

PATIENT
  Age: 59 Year
  Sex: Female

DRUGS (1)
  1. BRILIQUE [Suspect]
     Route: 048

REACTIONS (3)
  - PULMONARY HAEMORRHAGE [None]
  - RENAL IMPAIRMENT [None]
  - LARGE INTESTINAL HAEMORRHAGE [None]
